FAERS Safety Report 21849136 (Version 8)
Quarter: 2024Q2

REPORT INFORMATION
  Report Type: Spontaneous
  Country: US (occurrence: US)
  Receive Date: 20230111
  Receipt Date: 20240422
  Transmission Date: 20240716
  Serious: Yes (Hospitalization)
  Sender: FDA-Public Use
  Company Number: US-PFIZER INC-PV202200121979

PATIENT
  Age: 72 Year
  Sex: Female
  Weight: 77.098 kg

DRUGS (7)
  1. IBRANCE [Suspect]
     Active Substance: PALBOCICLIB
     Indication: Breast cancer metastatic
     Dosage: UNK, 1X/DAY
     Dates: start: 2019
  2. IBRANCE [Suspect]
     Active Substance: PALBOCICLIB
     Indication: BRCA1 gene mutation
     Dosage: 125 MG
  3. IBRANCE [Suspect]
     Active Substance: PALBOCICLIB
     Dosage: 100 MG
     Route: 048
  4. IBRANCE [Suspect]
     Active Substance: PALBOCICLIB
     Dosage: 125 MG
  5. IBRANCE [Suspect]
     Active Substance: PALBOCICLIB
     Dosage: ONE CAPSULE DAILY FOR 21 DAYS THEN 7 DAYS
     Route: 048
     Dates: start: 20220517
  6. LETROZOLE [Concomitant]
     Active Substance: LETROZOLE
     Indication: BRCA1 gene mutation
     Dosage: UNK
     Dates: start: 2019
  7. LETROZOLE [Concomitant]
     Active Substance: LETROZOLE
     Dosage: 2.5 QD (ONCE A DAY)
     Dates: start: 20220926

REACTIONS (2)
  - White blood cell count decreased [Recovered/Resolved]
  - Amnesia [Recovered/Resolved]
